FAERS Safety Report 15531140 (Version 1)
Quarter: 2018Q4

REPORT INFORMATION
  Report Type: Spontaneous
  Country: FR (occurrence: FR)
  Receive Date: 20181019
  Receipt Date: 20181019
  Transmission Date: 20190205
  Serious: Yes (Hospitalization)
  Sender: FDA-Public Use
  Company Number: FR-BRISTOL-MYERS SQUIBB COMPANY-BMS-2018-097613

PATIENT
  Age: 98 Year
  Sex: Male
  Weight: 48 kg

DRUGS (2)
  1. COUMADINE [Suspect]
     Active Substance: WARFARIN SODIUM
     Indication: ATRIAL FIBRILLATION
     Dosage: UNK
     Route: 048
  2. CLOPIDOGREL                        /01220705/ [Interacting]
     Active Substance: CLOPIDOGREL HYDROCHLORIDE
     Indication: PERIPHERAL ARTERIAL OCCLUSIVE DISEASE
     Dosage: 75 MG, PER DAY
     Route: 048

REACTIONS (3)
  - Anaemia [Recovering/Resolving]
  - International normalised ratio increased [Recovered/Resolved]
  - Drug interaction [Unknown]

NARRATIVE: CASE EVENT DATE: 20180903
